FAERS Safety Report 9127143 (Version 1)
Quarter: 2013Q1

REPORT INFORMATION
  Report Type: Spontaneous
  Country: US (occurrence: US)
  Receive Date: 20130228
  Receipt Date: 20130228
  Transmission Date: 20140127
  Serious: Yes (Other)
  Sender: FDA-Public Use
  Company Number: US-BAYER-2013-023522

PATIENT
  Age: 74 Year
  Sex: Female
  Weight: 86.17 kg

DRUGS (8)
  1. ALEVE CAPLET/TABLET,MIDOL EXTENDED RELIEF CAPLET [Suspect]
     Dosage: 1 DF, PRN
     Route: 048
  2. BAYER GENUINE ASPIRIN ORIGINAL STRENGTH [Suspect]
     Dosage: 1 DF, PRN
     Route: 048
  3. METHOTREXATE [Concomitant]
  4. HUMIRA [Concomitant]
  5. B12 [Concomitant]
  6. CALCIUM WITH VITAMIN D [Concomitant]
  7. DENOSUMAB [Concomitant]
  8. VITAMIN D [Concomitant]

REACTIONS (4)
  - Spinal compression fracture [None]
  - Coagulopathy [Not Recovered/Not Resolved]
  - Peripheral coldness [Not Recovered/Not Resolved]
  - Incorrect drug administration duration [None]
